FAERS Safety Report 9260798 (Version 2)
Quarter: 2013Q2

REPORT INFORMATION
  Report Type: Spontaneous
  Country: US (occurrence: US)
  Receive Date: 20130429
  Receipt Date: 20130624
  Transmission Date: 20140414
  Serious: Yes (Other)
  Sender: FDA-Public Use
  Company Number: US-BAYER-2013-050768

PATIENT
  Age: 67 Year
  Sex: Male
  Weight: 73.11 kg

DRUGS (6)
  1. NEXAVAR [Suspect]
     Indication: RENAL CELL CARCINOMA
     Dosage: UNK
     Dates: start: 20121205, end: 20130417
  2. NEXAVAR [Suspect]
     Indication: HEPATIC CANCER
     Dosage: UNK
     Dates: start: 201304, end: 20130417
  3. ASPIRIN [Concomitant]
  4. OMEPRAZOLE [Concomitant]
  5. FLOMAX [Concomitant]
  6. REGLAN [Concomitant]

REACTIONS (12)
  - Hepatic neoplasm [None]
  - Gastric neoplasm [None]
  - Pericardial effusion [None]
  - Deep vein thrombosis [None]
  - Abdominal lymphadenopathy [None]
  - Mucosal inflammation [None]
  - Pain [None]
  - Drug effect incomplete [None]
  - Weight decreased [None]
  - Nutritional condition abnormal [None]
  - Blood albumin decreased [None]
  - Early satiety [None]
